FAERS Safety Report 9336652 (Version 2)
Quarter: 2013Q2

REPORT INFORMATION
  Report Type: Report from Study
  Country: IN (occurrence: IN)
  Receive Date: 20130607
  Receipt Date: 20130621
  Transmission Date: 20140414
  Serious: Yes (Death, Hospitalization)
  Sender: FDA-Public Use
  Company Number: PHHY2013IN057172

PATIENT
  Age: 52 Year
  Sex: Male

DRUGS (1)
  1. TASIGNA [Suspect]
     Indication: CHRONIC MYELOID LEUKAEMIA
     Dosage: 400 MG, BID
     Route: 048
     Dates: start: 20130510, end: 201305

REACTIONS (2)
  - Death [Fatal]
  - Electrocardiogram QT prolonged [Unknown]
